FAERS Safety Report 15750613 (Version 1)
Quarter: 2018Q4

REPORT INFORMATION
  Report Type: Spontaneous
  Country: US (occurrence: US)
  Receive Date: 20181221
  Receipt Date: 20181221
  Transmission Date: 20190205
  Serious: Yes (Disabling)
  Sender: FDA-Public Use
  Company Number: None

PATIENT
  Age: 76 Year
  Sex: Male
  Weight: 114.75 kg

DRUGS (23)
  1. VALSARTAN. [Concomitant]
     Active Substance: VALSARTAN
  2. ASCORBIC ACID (VITAMIN C) [Concomitant]
     Active Substance: ASCORBIC ACID
  3. COREG [Concomitant]
     Active Substance: CARVEDILOL
  4. EMPAAGLIFLOZIN TABLETS - 25 MG [Suspect]
     Active Substance: EMPAGLIFLOZIN
     Indication: TYPE 2 DIABETES MELLITUS
     Dosage: ?          QUANTITY:1 TABLET(S);?
     Route: 048
  5. LASIX [Concomitant]
     Active Substance: FUROSEMIDE
  6. COLCHICINE (COLCRYS) [Concomitant]
  7. FERROUS GLUCONATE (IRON) [Concomitant]
  8. DOCOSAHEXANOIC (OMEGA-3 FISH OIL) [Concomitant]
  9. APRIA OXYGEN GAS (O2) [Concomitant]
  10. FLUTICASONE-SALMETEROL (ADVAIR DISKUS) [Concomitant]
  11. XARELTO [Concomitant]
     Active Substance: RIVAROXABAN
  12. CYANOCOBALAMIN (VITAMIN B12) [Concomitant]
  13. AMIODARONE (PACERONE) [Concomitant]
  14. EMPAGLIFLOZIN (JARDIANCE) [Concomitant]
  15. TIOTROPIUM (SPIRIVA) [Concomitant]
  16. ALBUTEROL HFA (VENTOLIN HFA) [Concomitant]
  17. LOSARTAN POTASSIUM. [Concomitant]
     Active Substance: LOSARTAN POTASSIUM
  18. CHOLECALCIFEROL (VITAMIN D3) [Concomitant]
  19. LIPITOR [Concomitant]
     Active Substance: ATORVASTATIN CALCIUM
  20. GLIMEPIRIDE (AMARYL) [Concomitant]
  21. JANUVIA [Concomitant]
     Active Substance: SITAGLIPTIN PHOSPHATE
  22. DELTASONE [Concomitant]
     Active Substance: PREDNISONE
  23. FOLIC ACID (FOLVITE) [Concomitant]

REACTIONS (1)
  - Penile discharge [None]

NARRATIVE: CASE EVENT DATE: 20180810
